FAERS Safety Report 4302003-4 (Version None)
Quarter: 2004Q1

REPORT INFORMATION
  Report Type: 
  Country: None (occurrence: None)
  Receive Date: 20040220
  Receipt Date: 20040116
  Transmission Date: 20041129
  Serious: Yes (Death)
  Sender: FDA-Public Use
  Company Number: US-JNJFOC-20040103351

PATIENT
  Age: 6 Decade
  Sex: Female
  Weight: 61.2356 kg

DRUGS (3)
  1. INFLIXIMAB (INFLIXIMAB, RECOMBINANT) LYOPHILIZED POWDER [Suspect]
     Indication: CROHN'S DISEASE
  2. MERCAPTOPURINE [Concomitant]
  3. MESALAMINE (MESALAZINE) [Concomitant]

REACTIONS (7)
  - ASTHENIA [None]
  - BACK PAIN [None]
  - HEPATIC LESION [None]
  - LYMPHADENOPATHY [None]
  - NEOPLASM MALIGNANT [None]
  - PULMONARY MASS [None]
  - SPINAL COMPRESSION FRACTURE [None]
